FAERS Safety Report 7294037-5 (Version None)
Quarter: 2011Q1

REPORT INFORMATION
  Report Type: 
  Country: None (occurrence: None)
  Receive Date: 20110215
  Receipt Date: 20110210
  Transmission Date: 20110831
  Serious: Yes (Hospitalization)
  Sender: FDA-Public Use
  Company Number: JP-ABBOTT-11P-087-0703616-00

PATIENT
  Sex: Male

DRUGS (3)
  1. HOKUNALIN [Suspect]
     Indication: ASTHMA
     Route: 062
     Dates: start: 20110202, end: 20110202
  2. HERBAL CARDIOTONIC DRUG [Concomitant]
     Indication: PRODUCT USED FOR UNKNOWN INDICATION
  3. MEPTIN [Concomitant]
     Indication: PRODUCT USED FOR UNKNOWN INDICATION
     Route: 055
     Dates: start: 20110202, end: 20110202

REACTIONS (2)
  - SUPRAVENTRICULAR TACHYCARDIA [None]
  - OVERDOSE [None]
